FAERS Safety Report 16026868 (Version 1)
Quarter: 2019Q1

REPORT INFORMATION
  Report Type: Other
  Country: DE (occurrence: DE)
  Receive Date: 20190303
  Receipt Date: 20190303
  Transmission Date: 20190418
  Serious: Yes (Death, Hospitalization, Other)
  Sender: FDA-Public Use
  Company Number: DE-APOTEX-2019AP008595

PATIENT
  Age: 59 Year
  Sex: Male

DRUGS (3)
  1. ACETYLSALICYLIC ACID [Suspect]
     Active Substance: ASPIRIN
     Indication: MYOCARDIAL INFARCTION
     Dosage: UNK
     Route: 065
  2. CLOPIDOGREL [Suspect]
     Active Substance: CLOPIDOGREL BISULFATE
     Indication: MYOCARDIAL INFARCTION
     Dosage: UNK (NR)
     Route: 065
  3. ENOXAPARIN SODIUM. [Suspect]
     Active Substance: ENOXAPARIN SODIUM
     Indication: MYOCARDIAL INFARCTION
     Dosage: UNK (FULL DOSE)
     Route: 065

REACTIONS (12)
  - Cerebral infarction [Fatal]
  - Retinal artery occlusion [Unknown]
  - Disease progression [Unknown]
  - Headache [Unknown]
  - Hemiparesis [Unknown]
  - Coma [Unknown]
  - Condition aggravated [Unknown]
  - Pituitary haemorrhage [Fatal]
  - Brain oedema [Fatal]
  - Pituitary tumour benign [Fatal]
  - Respiratory depression [Unknown]
  - Amaurosis [Unknown]
